FAERS Safety Report 6508029-4 (Version None)
Quarter: 2009Q4

REPORT INFORMATION
  Report Type: 
  Country: None (occurrence: None)
  Receive Date: 20091221
  Receipt Date: 20091209
  Transmission Date: 20100525
  Serious: Yes (Death)
  Sender: FDA-Public Use
  Company Number: GR-MILLENNIUM PHARMACEUTICALS, INC.-2009-05059

PATIENT

DRUGS (3)
  1. VELCADE [Suspect]
     Indication: PLASMABLASTIC LYMPHOMA
  2. VELCADE [Suspect]
     Indication: OFF LABEL USE
  3. CYCLOPHOSPHAMIDE [Concomitant]

REACTIONS (2)
  - DEATH [None]
  - OFF LABEL USE [None]
